FAERS Safety Report 17820608 (Version 1)
Quarter: 2020Q2

REPORT INFORMATION
  Report Type: Spontaneous
  Country: US (occurrence: US)
  Receive Date: 20200525
  Receipt Date: 20200525
  Transmission Date: 20200714
  Serious: No
  Sender: FDA-Public Use
  Company Number: US-HORIZON-ACT-0204-2020

PATIENT
  Age: 45 Year
  Sex: Male

DRUGS (1)
  1. ACTIMMUNE [Suspect]
     Active Substance: INTERFERON GAMMA-1B
     Indication: CHRONIC GRANULOMATOUS DISEASE
     Dosage: 115?G QOD TIW
     Route: 058
     Dates: start: 20200219

REACTIONS (3)
  - Pain [Unknown]
  - Influenza like illness [Unknown]
  - Arthralgia [Unknown]
